FAERS Safety Report 13539531 (Version 1)
Quarter: 2017Q2

REPORT INFORMATION
  Report Type: Spontaneous
  Country: CA (occurrence: CA)
  Receive Date: 20170512
  Receipt Date: 20170512
  Transmission Date: 20170830
  Serious: Yes (Other)
  Sender: FDA-Public Use
  Company Number: CA-TEVA-768043ACC

PATIENT
  Sex: Female

DRUGS (7)
  1. BUPROPION. [Suspect]
     Active Substance: BUPROPION
     Route: 065
  2. VENLAFAXINE [Suspect]
     Active Substance: VENLAFAXINE HYDROCHLORIDE
     Route: 048
  3. VENLAFAXINE [Suspect]
     Active Substance: VENLAFAXINE HYDROCHLORIDE
     Route: 048
  4. IMOVANE - TAB 5MG [Concomitant]
  5. QUETIAPINE. [Suspect]
     Active Substance: QUETIAPINE
  6. VENLAFAXINE [Suspect]
     Active Substance: VENLAFAXINE HYDROCHLORIDE
     Indication: POST-TRAUMATIC STRESS DISORDER
     Route: 048
  7. MARVELON [Concomitant]
     Active Substance: DESOGESTREL\ETHINYL ESTRADIOL

REACTIONS (2)
  - Depression [Unknown]
  - Drug ineffective [Unknown]
